FAERS Safety Report 16872044 (Version 1)
Quarter: 2019Q4

REPORT INFORMATION
  Report Type: Spontaneous
  Country: US (occurrence: US)
  Receive Date: 20191001
  Receipt Date: 20191001
  Transmission Date: 20200122
  Serious: No
  Sender: FDA-Public Use
  Company Number: US-CELGENEUS-USA-20190908793

PATIENT
  Sex: Female

DRUGS (3)
  1. THALOMID [Suspect]
     Active Substance: THALIDOMIDE
     Indication: MYELOFIBROSIS
     Dosage: 50 MILLIGRAM
     Route: 048
     Dates: start: 201812
  2. THALOMID [Suspect]
     Active Substance: THALIDOMIDE
     Indication: POLYCYTHAEMIA VERA
     Dosage: 50 MILLIGRAM
     Route: 048
     Dates: start: 20190627
  3. THALOMID [Suspect]
     Active Substance: THALIDOMIDE
     Indication: OFF LABEL USE

REACTIONS (1)
  - Muscle spasms [Not Recovered/Not Resolved]
